FAERS Safety Report 7490449-5 (Version None)
Quarter: 2011Q2

REPORT INFORMATION
  Report Type: 
  Country: None (occurrence: None)
  Receive Date: 20110519
  Receipt Date: 20110512
  Transmission Date: 20111010
  Serious: Yes (Hospitalization)
  Sender: FDA-Public Use
  Company Number: HK-SANOFI-AVENTIS-2011SA025687

PATIENT
  Age: 42 Year
  Sex: Male

DRUGS (1)
  1. TAXOTERE [Suspect]
     Route: 042
     Dates: start: 20110410, end: 20110410

REACTIONS (3)
  - HYPONATRAEMIA [None]
  - DEHYDRATION [None]
  - FEBRILE NEUTROPENIA [None]
